FAERS Safety Report 8893254 (Version 1)
Quarter: 2012Q4

REPORT INFORMATION
  Report Type: 
  Country: US (occurrence: US)
  Receive Date: 20121107
  Receipt Date: 20121107
  Transmission Date: 20130627
  Serious: No
  Sender: FDA-Public Use
  Company Number: US-AMGEN-USASP2011053739

PATIENT
  Age: 38 Year
  Sex: Female

DRUGS (6)
  1. ENBREL [Suspect]
     Indication: PRODUCT USED FOR UNKNOWN INDICATION
     Dosage: 50 mg, qwk
  2. FLEXERIL                           /00428402/ [Concomitant]
     Dosage: 10 mg, UNK
  3. CELEBREX [Concomitant]
     Dosage: 100 mg, UNK
  4. VICODIN ES [Concomitant]
  5. YAZ                                /01502501/ [Concomitant]
  6. MULTIVITAMINS [Concomitant]

REACTIONS (1)
  - Injection site erythema [Unknown]
